FAERS Safety Report 7451292-6 (Version None)
Quarter: 2011Q2

REPORT INFORMATION
  Report Type: 
  Country: None (occurrence: None)
  Receive Date: 20110422
  Receipt Date: 20110409
  Transmission Date: 20111010
  Serious: Yes (Hospitalization, Other)
  Sender: FDA-Public Use
  Company Number: CRC-11-072

PATIENT
  Age: 36 Year
  Sex: Male
  Weight: 90.7 kg

DRUGS (3)
  1. LYRICA [Suspect]
     Indication: CONVULSION
     Dosage: 500MG, 3X/DAY, ORAL
     Route: 048
     Dates: start: 20101115
  2. DILANTIN [Suspect]
     Indication: CONVULSION
     Dosage: 500MG, 3X/DAY, ORAL
     Route: 048
     Dates: start: 20080101, end: 20090101
  3. PHENYTOIN [Suspect]
     Indication: CONVULSION
     Dosage: 500MG, 3X/DAY, ORAL
     Route: 048
     Dates: start: 20090101, end: 20101101

REACTIONS (2)
  - GRAND MAL CONVULSION [None]
  - TEMPORAL LOBE EPILEPSY [None]
